FAERS Safety Report 19278830 (Version 1)
Quarter: 2021Q2

REPORT INFORMATION
  Report Type: Spontaneous
  Country: US (occurrence: US)
  Receive Date: 20210520
  Receipt Date: 20210520
  Transmission Date: 20210717
  Serious: Yes (Hospitalization)
  Sender: FDA-Public Use
  Company Number: None

PATIENT
  Age: 30 Year
  Sex: Female

DRUGS (6)
  1. PROTONIX [Concomitant]
     Active Substance: PANTOPRAZOLE SODIUM
  2. ALBUTEROL NEB [Concomitant]
     Active Substance: ALBUTEROL
  3. SINGULAIR [Concomitant]
     Active Substance: MONTELUKAST SODIUM
  4. ZYRTEC ALLGY [Concomitant]
  5. HYQVIA [Suspect]
     Active Substance: HUMAN IMMUNOGLOBULIN G\HYALURONIDASE RECOMBINANT HUMAN
     Indication: IMMUNODEFICIENCY COMMON VARIABLE
     Dosage: ?          OTHER FREQUENCY:Q28D ;?
     Dates: start: 20190607
  6. ATIVAN [Concomitant]
     Active Substance: LORAZEPAM

REACTIONS (7)
  - Asthenia [None]
  - Adverse drug reaction [None]
  - Nausea [None]
  - Palpitations [None]
  - Syncope [None]
  - Loss of consciousness [None]
  - Abdominal pain upper [None]

NARRATIVE: CASE EVENT DATE: 20210518
